FAERS Safety Report 22067739 (Version 3)
Quarter: 2023Q2

REPORT INFORMATION
  Report Type: Spontaneous
  Country: DE (occurrence: DE)
  Receive Date: 20230307
  Receipt Date: 20230531
  Transmission Date: 20230722
  Serious: Yes (Hospitalization, Other)
  Sender: FDA-Public Use
  Company Number: DE-Merck Healthcare KGaA-9382473

PATIENT
  Age: 70 Year
  Sex: Female

DRUGS (11)
  1. OXYCODONE [Suspect]
     Active Substance: OXYCODONE
     Indication: Product used for unknown indication
     Dosage: UNK (IN THE MORNING AT NOON AND IN THE EVENING)
     Route: 065
  2. REBIF [Suspect]
     Active Substance: INTERFERON BETA-1A
     Indication: Multiple sclerosis
     Dosage: 44 MICROGRAM (REBIJECT II)
     Route: 058
     Dates: start: 2010, end: 20221230
  3. REBIF [Suspect]
     Active Substance: INTERFERON BETA-1A
     Dosage: UNK
     Route: 058
     Dates: start: 20230130
  4. OMEPRAZOLE [Concomitant]
     Active Substance: OMEPRAZOLE
     Indication: Product used for unknown indication
     Dosage: 20 MILLIGRAM
     Route: 065
  5. GABAPENTIN [Concomitant]
     Active Substance: GABAPENTIN
     Indication: Product used for unknown indication
     Dosage: 600 MILLIGRAM
     Route: 065
  6. GABAPENTIN [Concomitant]
     Active Substance: GABAPENTIN
     Dosage: UNK (600+300 MG  (AT EVERY MEAL))
     Route: 065
  7. METOPROLOL SUCCINATE [Concomitant]
     Active Substance: METOPROLOL SUCCINATE
     Indication: Product used for unknown indication
     Dosage: 95 MILLIGRAM (1/2 TABLET)
     Route: 065
  8. EUTHYROX [Concomitant]
     Active Substance: LEVOTHYROXINE SODIUM
     Indication: Product used for unknown indication
     Dosage: 75 MICROGRAM
     Route: 065
  9. ASPIRIN [Concomitant]
     Active Substance: ASPIRIN
     Indication: Product used for unknown indication
     Dosage: 100 (100 UNIT UNSPECIFIED)
     Route: 065
  10. ACETAMINOPHEN [Concomitant]
     Active Substance: ACETAMINOPHEN
     Indication: Tremor
     Dosage: UNK
     Route: 065
  11. Spasmex [Concomitant]
     Indication: Urinary tract infection
     Dosage: 45 GRAM
     Route: 065

REACTIONS (12)
  - Syncope [Unknown]
  - Anal incontinence [Unknown]
  - Patella fracture [Recovering/Resolving]
  - Diabetes mellitus [Recovered/Resolved]
  - Decubitus ulcer [Unknown]
  - Overdose [Unknown]
  - Spinal column injury [Unknown]
  - Balance disorder [Unknown]
  - Hypoglycaemia [Recovered/Resolved]
  - Product administration interrupted [Recovered/Resolved]
  - Depression [Unknown]
  - Urinary incontinence [Unknown]

NARRATIVE: CASE EVENT DATE: 20221230
